FAERS Safety Report 7450468-1 (Version None)
Quarter: 2011Q2

REPORT INFORMATION
  Report Type: 
  Country: None (occurrence: None)
  Receive Date: 20110502
  Receipt Date: 20110428
  Transmission Date: 20111010
  Serious: Yes (Other)
  Sender: FDA-Public Use
  Company Number: TR-BRISTOL-MYERS SQUIBB COMPANY-15708050

PATIENT

DRUGS (4)
  1. METHYLPHENIDATE HCL [Interacting]
     Indication: BIPOLAR DISORDER
     Dosage: STARTED WITH 27MG
  2. ARIPIPRAZOLE [Suspect]
     Indication: ATTENTION DEFICIT/HYPERACTIVITY DISORDER
     Dosage: TAKEN AT NIGHT
  3. METHYLPHENIDATE HCL [Interacting]
     Indication: ATTENTION DEFICIT/HYPERACTIVITY DISORDER
     Dosage: STARTED WITH 27MG
  4. ARIPIPRAZOLE [Interacting]
     Indication: BIPOLAR DISORDER
     Dosage: TAKEN AT NIGHT

REACTIONS (2)
  - BIPOLAR I DISORDER [None]
  - DRUG INTERACTION [None]
